FAERS Safety Report 23030046 (Version 1)
Quarter: 2023Q4

REPORT INFORMATION
  Report Type: Spontaneous
  Country: CN (occurrence: CN)
  Receive Date: 20231005
  Receipt Date: 20231005
  Transmission Date: 20240110
  Serious: Yes (Hospitalization, Other)
  Sender: FDA-Public Use
  Company Number: CN-STRIDES ARCOLAB LIMITED-2023SP014979

PATIENT
  Age: 51 Year
  Sex: Male

DRUGS (18)
  1. PREDNISOLONE [Suspect]
     Active Substance: PREDNISOLONE
     Indication: Colitis ulcerative
     Dosage: UNK
     Route: 048
     Dates: start: 202201
  2. PREDNISOLONE [Suspect]
     Active Substance: PREDNISOLONE
     Dosage: 50 MILLIGRAM PER DAY
     Route: 048
     Dates: start: 2022
  3. PREDNISOLONE [Suspect]
     Active Substance: PREDNISOLONE
     Dosage: UNK (EVENTUALLY TAPERED AT 5 MG/WEEK)
     Route: 048
     Dates: start: 202202
  4. IMIPENEM AND CILASTATIN [Suspect]
     Active Substance: CILASTATIN SODIUM\IMIPENEM
     Indication: Acute febrile neutrophilic dermatosis
     Dosage: UNK
     Route: 065
     Dates: start: 202202, end: 202202
  5. IMIPENEM AND CILASTATIN [Suspect]
     Active Substance: CILASTATIN SODIUM\IMIPENEM
     Indication: Dermatitis bullous
  6. CYTARABINE [Suspect]
     Active Substance: CYTARABINE
     Indication: Acute myeloid leukaemia
     Dosage: UNK
     Route: 065
     Dates: start: 2022, end: 2022
  7. OMACETAXINE MEPESUCCINATE [Suspect]
     Active Substance: OMACETAXINE MEPESUCCINATE
     Indication: Acute myeloid leukaemia
     Dosage: UNK
     Route: 065
     Dates: start: 2022, end: 2022
  8. INFLIXIMAB [Suspect]
     Active Substance: INFLIXIMAB
     Indication: Colitis ulcerative
     Dosage: 300 MILLIGRAM (FIRST COURSE)
     Route: 042
     Dates: start: 20220208
  9. INFLIXIMAB [Suspect]
     Active Substance: INFLIXIMAB
     Dosage: UNK (SECOND COURSE)
     Route: 042
     Dates: start: 202202
  10. INFLIXIMAB [Suspect]
     Active Substance: INFLIXIMAB
     Dosage: UNK (THIRD COURSE)
     Route: 042
     Dates: start: 20220330
  11. MESALAMINE [Suspect]
     Active Substance: MESALAMINE
     Indication: Colitis ulcerative
     Dosage: UNK
     Route: 048
     Dates: start: 202201
  12. MESALAMINE [Suspect]
     Active Substance: MESALAMINE
     Dosage: 4 GRAM PER DAY
     Route: 048
     Dates: start: 2022
  13. MOMETASONE FUROATE [Suspect]
     Active Substance: MOMETASONE FUROATE
     Indication: Acute febrile neutrophilic dermatosis
     Dosage: UNK
     Route: 061
     Dates: start: 202202
  14. MOMETASONE FUROATE [Suspect]
     Active Substance: MOMETASONE FUROATE
     Indication: Dermatitis bullous
  15. THALIDOMIDE [Suspect]
     Active Substance: THALIDOMIDE
     Indication: Acute febrile neutrophilic dermatosis
     Dosage: 100 MILLIGRAM (PER DAY)
     Route: 048
     Dates: start: 20220206, end: 20220208
  16. THALIDOMIDE [Suspect]
     Active Substance: THALIDOMIDE
     Indication: Dermatitis bullous
  17. EBASTINE [Concomitant]
     Active Substance: EBASTINE
     Indication: Acute febrile neutrophilic dermatosis
     Dosage: 10 MILLIGRAM PER DAY
     Route: 048
     Dates: start: 202202
  18. EBASTINE [Concomitant]
     Active Substance: EBASTINE
     Indication: Dermatitis bullous

REACTIONS (5)
  - Acute myeloid leukaemia [Unknown]
  - Cytomegalovirus infection [Recovered/Resolved]
  - Bacterial infection [Unknown]
  - Fungal infection [Unknown]
  - Off label use [Unknown]

NARRATIVE: CASE EVENT DATE: 20220101
